FAERS Safety Report 24561779 (Version 1)
Quarter: 2024Q4

REPORT INFORMATION
  Report Type: Spontaneous
  Country: US (occurrence: US)
  Receive Date: 20241029
  Receipt Date: 20241029
  Transmission Date: 20250115
  Serious: No
  Sender: JUBILANT
  Company Number: US-JUBILANT CADISTA PHARMACEUTICALS INC.-2024JUB00067

PATIENT
  Sex: Female

DRUGS (3)
  1. ESCITALOPRAM [Suspect]
     Active Substance: ESCITALOPRAM OXALATE
     Dosage: UNK (CADISTA)
     Dates: start: 2013, end: 2018
  2. ESCITALOPRAM [Suspect]
     Active Substance: ESCITALOPRAM OXALATE
     Dosage: UNK (JUBILANT)
     Dates: start: 2018
  3. ESCITALOPRAM [Suspect]
     Active Substance: ESCITALOPRAM OXALATE
     Dosage: UNK (CADISTA)
     Dates: end: 202201

REACTIONS (10)
  - Crying [Recovered/Resolved]
  - Social avoidant behaviour [Recovered/Resolved]
  - Depressed mood [Recovered/Resolved]
  - Depression [Recovered/Resolved]
  - Headache [Recovered/Resolved]
  - Apathy [Recovered/Resolved]
  - Paranoia [Recovered/Resolved]
  - Somnolence [Recovered/Resolved]
  - Unevaluable event [Recovered/Resolved]
  - Product substitution issue [Recovered/Resolved]
